FAERS Safety Report 5958346-1 (Version None)
Quarter: 2008Q4

REPORT INFORMATION
  Report Type: 
  Country: None (occurrence: None)
  Receive Date: 20081117
  Receipt Date: 20081110
  Transmission Date: 20090506
  Serious: Yes (Other)
  Sender: FDA-Public Use
  Company Number: 2008040046

PATIENT
  Age: 29 Year
  Sex: Female

DRUGS (7)
  1. ASTELIN [Suspect]
     Indication: EAR DISORDER
     Dosage: (274 MCG,ONCE), IN
     Dates: start: 20080422, end: 20080422
  2. ASTELIN [Suspect]
     Indication: HYPERSENSITIVITY
     Dosage: (274 MCG,ONCE), IN
     Dates: start: 20080422, end: 20080422
  3. NASONEX [Concomitant]
  4. XOPENEX [Concomitant]
  5. ESTRADIOL [Concomitant]
  6. SERTRALINE [Concomitant]
  7. SPIRONOLACTONE [Concomitant]

REACTIONS (22)
  - ANALGESIC DRUG LEVEL BELOW THERAPEUTIC [None]
  - BLOOD ALBUMIN DECREASED [None]
  - BLOOD PRESSURE INCREASED [None]
  - CHRONIC SINUSITIS [None]
  - CONFUSIONAL STATE [None]
  - CONVULSION [None]
  - COUGH [None]
  - DIZZINESS [None]
  - DYSKINESIA [None]
  - DYSPNOEA [None]
  - EYE MOVEMENT DISORDER [None]
  - HEADACHE [None]
  - HEART RATE INCREASED [None]
  - HYPERSENSITIVITY [None]
  - LETHARGY [None]
  - LOSS OF CONSCIOUSNESS [None]
  - MENTAL IMPAIRMENT [None]
  - MUSCLE SPASMS [None]
  - MYDRIASIS [None]
  - RESPIRATORY RATE INCREASED [None]
  - UNRESPONSIVE TO STIMULI [None]
  - VOMITING [None]
